FAERS Safety Report 13260630 (Version 1)
Quarter: 2017Q1

REPORT INFORMATION
  Report Type: Spontaneous
  Country: CN (occurrence: CN)
  Receive Date: 20170222
  Receipt Date: 20170222
  Transmission Date: 20170428
  Serious: Yes (Other)
  Sender: FDA-Public Use
  Company Number: CN-BRISTOL-MYERS SQUIBB COMPANY-BMS-2017-013181

PATIENT
  Age: 56 Year
  Sex: Female
  Weight: 70 kg

DRUGS (1)
  1. GLUCOPHAGE [Suspect]
     Active Substance: METFORMIN HYDROCHLORIDE
     Indication: DIABETES MELLITUS
     Dosage: 500 MG, BID
     Route: 048
     Dates: start: 20161207, end: 20161213

REACTIONS (9)
  - Palpitations [Unknown]
  - Myalgia [Unknown]
  - Gastrointestinal disorder [Unknown]
  - Hyperhidrosis [Unknown]
  - Fatigue [Unknown]
  - Dizziness [Unknown]
  - Chills [Unknown]
  - Abdominal distension [Unknown]
  - Dyspepsia [Unknown]

NARRATIVE: CASE EVENT DATE: 20161213
